FAERS Safety Report 4523577-4 (Version None)
Quarter: 2004Q4

REPORT INFORMATION
  Report Type: 
  Country: None (occurrence: None)
  Receive Date: 20041209
  Receipt Date: 20041209
  Transmission Date: 20050328
  Serious: Yes (Life-Threatening, Hospitalization)
  Sender: FDA-Public Use
  Company Number: None

PATIENT
  Age: 80 Year
  Sex: Male
  Weight: 70.3075 kg

DRUGS (9)
  1. TARCEVA [Suspect]
     Indication: NON-SMALL CELL LUNG CANCER
     Dosage: 150 MG/PO/1 TABLET/DAY
     Route: 048
     Dates: start: 20040206, end: 20040217
  2. ATENOLOL [Concomitant]
  3. PLENDIL [Concomitant]
  4. ATIVAN [Concomitant]
  5. TERAZOSYN [Concomitant]
  6. AMITRIPTYLINE HCL [Concomitant]
  7. SIMVISTATIN [Concomitant]
  8. COUMADIN [Concomitant]
  9. NAPROSYN [Concomitant]

REACTIONS (6)
  - COUGH [None]
  - FEELING ABNORMAL [None]
  - HAEMOPTYSIS [None]
  - MALAISE [None]
  - NAUSEA [None]
  - RASH [None]
